FAERS Safety Report 23906122 (Version 1)
Quarter: 2024Q2

REPORT INFORMATION
  Report Type: Report from Study
  Country: US (occurrence: US)
  Receive Date: 20240528
  Receipt Date: 20240528
  Transmission Date: 20240715
  Serious: Yes (Other)
  Sender: FDA-Public Use
  Company Number: US-ABBVIE-5772722

PATIENT
  Age: 76 Year
  Sex: Male

DRUGS (1)
  1. RINVOQ [Suspect]
     Active Substance: UPADACITINIB
     Indication: Rheumatoid arthritis
     Route: 048
     Dates: start: 20230809

REACTIONS (9)
  - Blood iron increased [Unknown]
  - Therapeutic response unexpected [Recovering/Resolving]
  - Pain in extremity [Recovered/Resolved]
  - Dyspepsia [Recovering/Resolving]
  - Peripheral venous disease [Not Recovered/Not Resolved]
  - Arthralgia [Unknown]
  - Pain in extremity [Unknown]
  - Visual impairment [Unknown]
  - Coeliac disease [Unknown]

NARRATIVE: CASE EVENT DATE: 20231201
